FAERS Safety Report 25239863 (Version 1)
Quarter: 2025Q2

REPORT INFORMATION
  Report Type: Spontaneous
  Country: US (occurrence: US)
  Receive Date: 20250425
  Receipt Date: 20250425
  Transmission Date: 20250717
  Serious: Yes (Other)
  Sender: TEVA
  Company Number: US-TEVA-VS-3322769

PATIENT
  Age: 78 Year
  Sex: Male
  Weight: 72.57 kg

DRUGS (1)
  1. DIFLUNISAL [Suspect]
     Active Substance: DIFLUNISAL
     Indication: Arthritis
     Route: 065

REACTIONS (2)
  - Acute kidney injury [Unknown]
  - Blood creatinine increased [Unknown]
